FAERS Safety Report 7230495-X (Version None)
Quarter: 2011Q1

REPORT INFORMATION
  Report Type: 
  Country: None (occurrence: None)
  Receive Date: 20110118
  Receipt Date: 20110105
  Transmission Date: 20110831
  Serious: Yes (Other)
  Sender: FDA-Public Use
  Company Number: PHEH2007US05476

PATIENT
  Sex: Female

DRUGS (14)
  1. PENICILLIN VK [Concomitant]
     Dosage: 500MG
     Dates: start: 20070301
  2. FEMARA [Concomitant]
     Dosage: 2.5MG TABLET
     Dates: start: 20051101
  3. NIFEDICAL [Concomitant]
     Dosage: 60MG
     Dates: start: 20070101
  4. AREDIA [Suspect]
     Dosage: UNK
  5. NIFEDIAC CC [Concomitant]
     Dosage: 60MG
     Dates: start: 20051101
  6. CLARITIN [Concomitant]
  7. ACETAMINOPHEN AND HYDROCODONE BITARTRATE [Concomitant]
     Dosage: UNK
     Dates: start: 20070301
  8. HYDROCHLOROTHIAZIDE [Concomitant]
  9. BISOPROLOL FUMARATE AND HYDROCHLOROTHIAZIDE [Concomitant]
     Dosage: UNK
     Dates: start: 20051101
  10. LIPITOR [Concomitant]
     Dosage: 20MG
     Dates: start: 20051001
  11. GABAPENTIN [Concomitant]
     Dosage: 300MG
     Dates: start: 20060501
  12. ZOMETA [Suspect]
     Dosage: UNK
  13. PAROXETINE HYDROCHLORIDE [Concomitant]
     Dosage: 20MG
     Dates: start: 20051101
  14. METRONIDAZOLE [Concomitant]
     Dosage: 500MG
     Dates: start: 20070301

REACTIONS (16)
  - OSTEONECROSIS OF JAW [None]
  - SWELLING FACE [None]
  - PYREXIA [None]
  - DIASTOLIC DYSFUNCTION [None]
  - DYSURIA [None]
  - ANXIETY [None]
  - RENAL CYST [None]
  - PAIN [None]
  - VENTRICULAR HYPERTROPHY [None]
  - INJURY [None]
  - EXOSTOSIS [None]
  - METASTATIC NEOPLASM [None]
  - VAGINAL INFECTION [None]
  - NEUROPATHY PERIPHERAL [None]
  - HYPERAESTHESIA [None]
  - SOFT TISSUE DISORDER [None]
